FAERS Safety Report 8018102-X (Version None)
Quarter: 2012Q1

REPORT INFORMATION
  Report Type: 
  Country: None (occurrence: None)
  Receive Date: 20120103
  Receipt Date: 20111222
  Transmission Date: 20120608
  Serious: Yes (Other)
  Sender: FDA-Public Use
  Company Number: JP-JNJFOC-20111210742

PATIENT
  Sex: Male

DRUGS (8)
  1. PHENOBARBITAL TAB [Concomitant]
     Indication: EPILEPSY
     Route: 048
     Dates: end: 20090314
  2. PHENYTOIN SODIUM CAP [Concomitant]
     Indication: EPILEPSY
     Route: 048
     Dates: end: 20090314
  3. ZYRTEC [Concomitant]
     Indication: PRODUCT USED FOR UNKNOWN INDICATION
     Route: 048
  4. PHENYTOIN [Concomitant]
     Route: 048
     Dates: start: 20090213, end: 20090314
  5. TOPIRAMATE [Suspect]
     Indication: EPILEPSY
     Route: 048
     Dates: start: 20081219, end: 20090117
  6. TOPIRAMATE [Suspect]
     Route: 048
     Dates: start: 20090118, end: 20090314
  7. TEGRETOL [Concomitant]
     Indication: EPILEPSY
     Route: 048
     Dates: end: 20090314
  8. PHENYTOIN [Concomitant]
     Indication: EPILEPSY
     Route: 048
     Dates: end: 20090212

REACTIONS (1)
  - DECREASED ACTIVITY [None]
